FAERS Safety Report 8112251-3 (Version None)
Quarter: 2012Q1

REPORT INFORMATION
  Report Type: 
  Country: None (occurrence: None)
  Receive Date: 20120131
  Receipt Date: 20120118
  Transmission Date: 20120608
  Serious: Yes (Life-Threatening, Hospitalization)
  Sender: FDA-Public Use
  Company Number: AMAG201200011

PATIENT
  Age: 65 Year
  Sex: Male

DRUGS (1)
  1. FERAHEME [Suspect]
     Dosage: 1 ML, SINGLE (30 MG TEST DOSE)
     Dates: start: 20120111, end: 20120111

REACTIONS (4)
  - HYPOXIA [None]
  - LOSS OF CONSCIOUSNESS [None]
  - RESPIRATORY ARREST [None]
  - PULSE ABSENT [None]
